FAERS Safety Report 6544063-6 (Version None)
Quarter: 2010Q1

REPORT INFORMATION
  Report Type: 
  Country: None (occurrence: None)
  Receive Date: 20100120
  Receipt Date: 20100106
  Transmission Date: 20100710
  Serious: Yes (Other)
  Sender: FDA-Public Use
  Company Number: GB-MYLANLABS-2010S1000392

PATIENT
  Age: 29 Year
  Sex: Female

DRUGS (11)
  1. RANITIDINE [Suspect]
     Indication: CAESAREAN SECTION
  2. RANITIDINE [Suspect]
     Indication: ANALGESIC THERAPY
  3. THIOPENTAL SODIUM [Suspect]
     Indication: CAESAREAN SECTION
  4. THIOPENTAL SODIUM [Suspect]
     Indication: ANALGESIC THERAPY
  5. SUCCINYLCHOLINE CHLORIDE [Suspect]
     Indication: CAESAREAN SECTION
  6. SUCCINYLCHOLINE CHLORIDE [Suspect]
     Indication: ANALGESIC THERAPY
  7. FENTANYL [Suspect]
     Indication: CAESAREAN SECTION
  8. FENTANYL [Suspect]
     Indication: ANALGESIC THERAPY
  9. MORPHINE [Suspect]
     Indication: CAESAREAN SECTION
  10. MORPHINE [Suspect]
     Indication: ANALGESIC THERAPY
  11. EPHEDRINE [Suspect]
     Indication: BLOOD PRESSURE SYSTOLIC

REACTIONS (5)
  - DRUG EXPOSURE DURING PREGNANCY [None]
  - ENCEPHALOPATHY [None]
  - HYPOTENSION [None]
  - NORMAL NEWBORN [None]
  - OLIGURIA [None]
